FAERS Safety Report 9562794 (Version 1)
Quarter: 2013Q3

REPORT INFORMATION
  Report Type: Spontaneous
  Country: FR (occurrence: FR)
  Receive Date: 20130927
  Receipt Date: 20130927
  Transmission Date: 20140515
  Serious: Yes (Other)
  Sender: FDA-Public Use
  Company Number: FR-BRISTOL-MYERS SQUIBB COMPANY-19439009

PATIENT
  Age: 75 Year
  Sex: Male

DRUGS (3)
  1. KOMBOGLYZE [Suspect]
     Indication: DIABETES MELLITUS
     Route: 048
     Dates: start: 201303, end: 2013
  2. CRESTOR [Suspect]
     Route: 048
     Dates: start: 2013, end: 201307
  3. DAONIL [Concomitant]
     Indication: DIABETES MELLITUS
     Route: 048

REACTIONS (1)
  - Drug-induced liver injury [Recovering/Resolving]
